FAERS Safety Report 24903108 (Version 2)
Quarter: 2025Q1

REPORT INFORMATION
  Report Type: Spontaneous
  Country: US (occurrence: US)
  Receive Date: 20250130
  Receipt Date: 20250207
  Transmission Date: 20250408
  Serious: Yes (Hospitalization, Other)
  Sender: GRAVITI PHARMACEUTICALS PRIVATE LIMITED
  Company Number: US-GRAVITIPHARMA-GRA-2501-US-LIT-0052

PATIENT
  Age: 48 Year
  Sex: Male

DRUGS (1)
  1. BUPROPION HYDROCHLORIDE [Suspect]
     Active Substance: BUPROPION HYDROCHLORIDE
     Indication: Product used for unknown indication
     Route: 065

REACTIONS (6)
  - Status epilepticus [Unknown]
  - Electrocardiogram QT prolonged [Unknown]
  - Chest discomfort [Unknown]
  - Nervous system disorder [Recovered/Resolved]
  - Hypotension [Unknown]
  - Overdose [Unknown]
